FAERS Safety Report 22296567 (Version 1)
Quarter: 2023Q2

REPORT INFORMATION
  Report Type: Report from Study
  Country: FR (occurrence: FR)
  Receive Date: 20230508
  Receipt Date: 20230508
  Transmission Date: 20230721
  Serious: Yes (Other)
  Sender: FDA-Public Use
  Company Number: FR-GILEAD-2023-0627173

PATIENT
  Age: 63 Year
  Sex: Female

DRUGS (3)
  1. LENACAPAVIR [Suspect]
     Active Substance: LENACAPAVIR
     Indication: Product used for unknown indication
     Dosage: UNK
     Route: 048
     Dates: start: 20230315
  2. IBALIZUMAB [Concomitant]
     Active Substance: IBALIZUMAB
  3. FOSTEMSAVIR [Concomitant]
     Active Substance: FOSTEMSAVIR

REACTIONS (4)
  - Hepatic cytolysis [Unknown]
  - Nodule [Unknown]
  - Weight increased [Unknown]
  - Psoriasis [Unknown]

NARRATIVE: CASE EVENT DATE: 20230315
